FAERS Safety Report 5116841-1 (Version None)
Quarter: 2006Q3

REPORT INFORMATION
  Report Type: 
  Country: None (occurrence: None)
  Receive Date: 20060925
  Receipt Date: 20060914
  Transmission Date: 20061208
  Serious: Yes (Death)
  Sender: FDA-Public Use
  Company Number: T200601006

PATIENT
  Age: 49 Year
  Sex: Female

DRUGS (1)
  1. LIQUID BAROSPERSE (BARIUM SULFATE)SUSPENSION [Suspect]
     Indication: X-RAY GASTROINTESTINAL TRACT

REACTIONS (6)
  - BRONCHOSPASM [None]
  - DYSPNOEA [None]
  - FEELING HOT [None]
  - HYPERSENSITIVITY [None]
  - PRURITUS [None]
  - WHEEZING [None]
